FAERS Safety Report 4611645-8 (Version None)
Quarter: 2005Q1

REPORT INFORMATION
  Report Type: 
  Country: None (occurrence: None)
  Receive Date: 20050316
  Receipt Date: 20050316
  Transmission Date: 20050727
  Serious: Yes (Other)
  Sender: FDA-Public Use
  Company Number: None

PATIENT
  Age: 62 Year
  Sex: Male
  Weight: 146.9654 kg

DRUGS (6)
  1. TEQUIN [Suspect]
     Dosage: 400 MG PO DAILY
     Route: 048
     Dates: start: 20041119, end: 20041129
  2. GLYBURIDE [Concomitant]
  3. FUROSEMIDE [Concomitant]
  4. ZOCOR [Concomitant]
  5. SPIRONOLACTONE [Concomitant]
  6. INHALERS [Concomitant]

REACTIONS (1)
  - HYPERGLYCAEMIA [None]
